FAERS Safety Report 24285664 (Version 1)
Quarter: 2024Q3

REPORT INFORMATION
  Report Type: Spontaneous
  Country: US (occurrence: US)
  Receive Date: 20240905
  Receipt Date: 20240905
  Transmission Date: 20241016
  Serious: No
  Sender: RECKITT BENCKISER
  Company Number: US-PROD-AS2-212756134-RB-082235-2024

PATIENT
  Age: 58 Year
  Sex: Female
  Weight: 63.64 kg

DRUGS (1)
  1. MUCINEX MAXIMUM STRENGTH [Suspect]
     Active Substance: GUAIFENESIN
     Indication: Cough
     Dosage: 1 DF BID
     Route: 048
     Dates: start: 20240101

REACTIONS (1)
  - Incorrect product administration duration [Unknown]
